FAERS Safety Report 21253305 (Version 1)
Quarter: 2022Q3

REPORT INFORMATION
  Report Type: Spontaneous
  Country: US (occurrence: None)
  Receive Date: 20220824
  Receipt Date: 20220824
  Transmission Date: 20221027
  Serious: Yes (Other)
  Sender: FDA-Public Use
  Company Number: None

PATIENT
  Age: 36 Year
  Sex: Female

DRUGS (2)
  1. BOTOX [Suspect]
     Active Substance: ONABOTULINUMTOXINA
     Indication: Migraine
     Dosage: OTHER QUANTITY : 200 UNIT;?OTHER FREQUENCY : EVERY 3 MONTHS;?OTHER ROUTE : INJECTION;?
     Route: 050
     Dates: start: 20170706
  2. BOTOX [Suspect]
     Active Substance: ONABOTULINUMTOXINA
     Dosage: OTHER QUANTITY : 155 UNITS;?OTHER FREQUENCY : EVERY 3 MONTHS;?OTHER ROUTE : INJECTION;?
     Route: 050

REACTIONS (1)
  - Systemic lupus erythematosus [None]

NARRATIVE: CASE EVENT DATE: 20220601
